FAERS Safety Report 6140919-7 (Version None)
Quarter: 2009Q2

REPORT INFORMATION
  Report Type: 
  Country: None (occurrence: None)
  Receive Date: 20090402
  Receipt Date: 20090326
  Transmission Date: 20091009
  Serious: Yes (Other)
  Sender: FDA-Public Use
  Company Number: US-ASTRAZENECA-2008UW22853

PATIENT
  Age: 53 Year
  Sex: Female
  Weight: 120.2 kg

DRUGS (7)
  1. SEROQUEL [Suspect]
     Indication: SLEEP DISORDER
     Route: 048
     Dates: start: 20030201, end: 20070101
  2. SEROQUEL [Suspect]
     Indication: MENTAL DISORDER
     Route: 048
     Dates: start: 20030201, end: 20070101
  3. SEROQUEL [Suspect]
     Route: 048
     Dates: start: 20070101
  4. SEROQUEL [Suspect]
     Route: 048
     Dates: start: 20070101
  5. GEODON [Concomitant]
     Dates: start: 20010613, end: 20060215
  6. ZYPREXA [Concomitant]
     Dates: start: 20030131, end: 20030605
  7. EFFEXOR XR [Concomitant]
     Dosage: 75MG, 150MG
     Dates: start: 20010101

REACTIONS (4)
  - CARDIOVASCULAR DISORDER [None]
  - CARPAL TUNNEL SYNDROME [None]
  - DIABETES MELLITUS [None]
  - SUICIDE ATTEMPT [None]
